FAERS Safety Report 8499503-2 (Version None)
Quarter: 2012Q2

REPORT INFORMATION
  Report Type: 
  Country: None (occurrence: None)
  Receive Date: 20120628
  Receipt Date: 20120615
  Transmission Date: 20120825
  Serious: Yes (Death, Hospitalization)
  Sender: FDA-Public Use
  Company Number: UTC-019866

PATIENT
  Age: 82 Year
  Sex: Male
  Weight: 88.2 kg

DRUGS (5)
  1. REMODULIN [Suspect]
     Indication: PULMONARY ARTERIAL HYPERTENSION
     Dosage: 18.72 UG/KG (0.013 UG/KG, 1 IN 1 MIN), SUBCUTANEOUS
     Route: 058
     Dates: start: 20101119
  2. DIURETICS (DIURETICS) [Concomitant]
  3. TRACLEER [Suspect]
  4. VIAGRA [Concomitant]
  5. COUMADIN [Concomitant]

REACTIONS (1)
  - PELVIC FRACTURE [None]
